FAERS Safety Report 8274502-4 (Version None)
Quarter: 2012Q2

REPORT INFORMATION
  Report Type: 
  Country: None (occurrence: None)
  Receive Date: 20120411
  Receipt Date: 20120404
  Transmission Date: 20120825
  Serious: Yes (Other)
  Sender: FDA-Public Use
  Company Number: CH-TEVA-332165ISR

PATIENT
  Age: 65 Year
  Sex: Male

DRUGS (8)
  1. ALENDRON MEPHA 70 [Suspect]
     Dosage: 10 MILLIGRAM;
     Route: 048
     Dates: start: 20110701, end: 20110801
  2. ALLOPUR [Concomitant]
     Dosage: 100 MILLIGRAM;
     Route: 048
  3. BILOL [Concomitant]
     Dosage: 10 MILLIGRAM;
     Route: 048
  4. COVERAM (AMLODIPINE BESILATE/PERINDOPRIL) [Concomitant]
     Dosage: 10 MILLIGRAM;
     Route: 048
  5. NOVOMIX [Concomitant]
     Dosage: 30%/70% 22-0-10
     Route: 058
  6. VI DE [Concomitant]
     Dosage: 12 GTT;
     Route: 048
  7. CLOPIDOGREL TEVA [Concomitant]
     Dosage: 75 MILLIGRAM;
     Route: 048
  8. SIMCORA [Concomitant]
     Dosage: 20 MILLIGRAM;
     Route: 048

REACTIONS (3)
  - VISUAL IMPAIRMENT [None]
  - EYE PAIN [None]
  - BLINDNESS TRANSIENT [None]
